FAERS Safety Report 7468491-X (Version None)
Quarter: 2011Q2

REPORT INFORMATION
  Report Type: 
  Country: None (occurrence: None)
  Receive Date: 20110509
  Receipt Date: 20110502
  Transmission Date: 20111010
  Serious: Yes (Disabling, Other)
  Sender: FDA-Public Use
  Company Number: US-MERCK-1102USA00334

PATIENT
  Age: 57 Year
  Sex: Female

DRUGS (8)
  1. CALCIUM (UNSPECIFIED) AND VITAMIN D (UNSPECIFIED) [Concomitant]
     Route: 065
     Dates: start: 19950101
  2. FOSAMAX [Suspect]
     Route: 048
     Dates: start: 20020101, end: 20080301
  3. ALENDRONATE SODIUM [Suspect]
     Indication: OSTEOPENIA
     Route: 048
     Dates: start: 20080301, end: 20100101
  4. VITAMINS (UNSPECIFIED) [Concomitant]
     Route: 065
     Dates: start: 19950101
  5. ALLEGRA [Concomitant]
     Indication: SEASONAL ALLERGY
     Route: 065
  6. FOSAMAX [Suspect]
     Indication: OSTEOPENIA
     Route: 048
     Dates: start: 20001101, end: 20020101
  7. ZYRTEC [Concomitant]
     Indication: SEASONAL ALLERGY
     Route: 065
  8. CLARITIN [Concomitant]
     Indication: SEASONAL ALLERGY
     Route: 048

REACTIONS (9)
  - STRESS FRACTURE [None]
  - FEMUR FRACTURE [None]
  - LOW TURNOVER OSTEOPATHY [None]
  - FRACTURE NONUNION [None]
  - TOOTH DISORDER [None]
  - ANKLE FRACTURE [None]
  - OSTEOPOROSIS [None]
  - ARTHRITIS INFECTIVE [None]
  - IMPAIRED HEALING [None]
